FAERS Safety Report 7203079-7 (Version None)
Quarter: 2010Q4

REPORT INFORMATION
  Report Type: 
  Country: None (occurrence: None)
  Receive Date: 20101229
  Receipt Date: 20101221
  Transmission Date: 20110411
  Serious: Yes (Hospitalization)
  Sender: FDA-Public Use
  Company Number: US-ABBOTT-10P-163-0693288-00

PATIENT
  Sex: Male
  Weight: 69.008 kg

DRUGS (7)
  1. HUMIRA [Suspect]
     Indication: CROHN'S DISEASE
     Dates: start: 20100601
  2. PENTASA [Concomitant]
     Indication: CROHN'S DISEASE
  3. NEXIUM [Concomitant]
     Indication: GASTROOESOPHAGEAL REFLUX DISEASE
  4. MERCAPTOPURINE [Concomitant]
     Indication: CROHN'S DISEASE
  5. WELLBUTRIN [Concomitant]
     Indication: PRODUCT USED FOR UNKNOWN INDICATION
  6. LORTAB [Concomitant]
     Indication: PAIN
     Dosage: 10/375 MG AS NEEDED
  7. PHENERGAN [Concomitant]
     Indication: NAUSEA

REACTIONS (6)
  - ABDOMINAL DISTENSION [None]
  - CLOSTRIDIAL INFECTION [None]
  - CROHN'S DISEASE [None]
  - DEVICE RELATED INFECTION [None]
  - NAUSEA [None]
  - VOMITING [None]
